FAERS Safety Report 10798596 (Version 1)
Quarter: 2015Q1

REPORT INFORMATION
  Report Type: Report from Study
  Country: ES (occurrence: ES)
  Receive Date: 20150216
  Receipt Date: 20150216
  Transmission Date: 20150721
  Serious: Yes (Hospitalization)
  Sender: FDA-Public Use
  Company Number: ES-ABBVIE-15P-144-1346190-00

PATIENT
  Age: 74 Year
  Sex: Female

DRUGS (2)
  1. DUODOPA [Suspect]
     Active Substance: CARBIDOPA\LEVODOPA
     Indication: PARKINSON^S DISEASE
     Dosage: MORNING DOSE: 7.5 ML; CONTINUOUS DOSE: 3.5 ML/HOUR; EXTRA DOSE:2.5 ML
     Route: 050
     Dates: start: 201403
  2. SINEMET [Concomitant]
     Active Substance: CARBIDOPA\LEVODOPA
     Indication: PRODUCT USED FOR UNKNOWN INDICATION
     Dosage: AT NIGHT
     Route: 048

REACTIONS (4)
  - Device alarm issue [Unknown]
  - Freezing phenomenon [Unknown]
  - Device occlusion [Unknown]
  - Fatigue [Unknown]

NARRATIVE: CASE EVENT DATE: 201502
